FAERS Safety Report 12878869 (Version 1)
Quarter: 2016Q4

REPORT INFORMATION
  Report Type: Spontaneous
  Country: US (occurrence: US)
  Receive Date: 20161024
  Receipt Date: 20161024
  Transmission Date: 20170207
  Serious: No
  Sender: FDA-Public Use
  Company Number: US-009507513-1610USA012305

PATIENT

DRUGS (2)
  1. ZEPATIER [Suspect]
     Active Substance: ELBASVIR\GRAZOPREVIR
     Indication: HEPATITIS C
     Dosage: 100/50 MG ONCE A DAY
     Route: 048
  2. REBETOL [Concomitant]
     Active Substance: RIBAVIRIN

REACTIONS (2)
  - Amylase increased [Unknown]
  - Lipase increased [Unknown]
